FAERS Safety Report 6204670-7 (Version None)
Quarter: 2009Q2

REPORT INFORMATION
  Report Type: 
  Country: None (occurrence: None)
  Receive Date: 20090527
  Receipt Date: 20090520
  Transmission Date: 20091009
  Serious: Yes (Other)
  Sender: FDA-Public Use
  Company Number: US-JNJCH-2009014216

PATIENT
  Age: 23 Year
  Sex: Male
  Weight: 74.8 kg

DRUGS (1)
  1. ZYRTEC [Suspect]
     Indication: SEASONAL ALLERGY
     Dosage: TEXT:1 TABLET EVERY 24 HOURS
     Route: 048
     Dates: start: 20090301, end: 20090520

REACTIONS (3)
  - LOSS OF CONSCIOUSNESS [None]
  - NIGHT SWEATS [None]
  - PYREXIA [None]
